FAERS Safety Report 4615007-9 (Version None)
Quarter: 2005Q1

REPORT INFORMATION
  Report Type: 
  Country: None (occurrence: None)
  Receive Date: 20050322
  Receipt Date: 20050309
  Transmission Date: 20050727
  Serious: Yes (Hospitalization)
  Sender: FDA-Public Use
  Company Number: CA-ROCHE-399127

PATIENT
  Age: 60 Year
  Sex: Female
  Weight: 73.4 kg

DRUGS (5)
  1. PEG-INTERFERON ALFA 2A (RO 25-8310) [Suspect]
     Dosage: DOSAGE FORM REPORTED AS PREFILLED SYRINGE.
     Route: 058
     Dates: start: 20041214
  2. RIBAVIRIN [Suspect]
     Route: 048
     Dates: start: 20041214
  3. INSULIN [Concomitant]
  4. CALCIUM GLUCONATE [Concomitant]
  5. NORTRIPTYLINE HCL [Concomitant]

REACTIONS (3)
  - ASTHENIA [None]
  - DIZZINESS [None]
  - FALL [None]
